FAERS Safety Report 13076281 (Version 1)
Quarter: 2016Q4

REPORT INFORMATION
  Report Type: Spontaneous
  Country: DK (occurrence: DK)
  Receive Date: 20161230
  Receipt Date: 20161230
  Transmission Date: 20170207
  Serious: Yes (Other)
  Sender: FDA-Public Use
  Company Number: DK-GLAXOSMITHKLINE-DK2016GSK192524

PATIENT
  Age: 31 Year
  Sex: Female

DRUGS (2)
  1. LAMISIL [Suspect]
     Active Substance: TERBINAFINE HYDROCHLORIDE
     Indication: FUNGAL SKIN INFECTION
     Dosage: 10 MG/G
     Route: 003
     Dates: start: 201606, end: 201606
  2. MAREVAN [Concomitant]
     Active Substance: WARFARIN SODIUM

REACTIONS (4)
  - Muscle haemorrhage [Not Recovered/Not Resolved]
  - Impaired work ability [Unknown]
  - Pain in extremity [Recovering/Resolving]
  - International normalised ratio increased [Unknown]

NARRATIVE: CASE EVENT DATE: 2016
